FAERS Safety Report 8614017-4 (Version None)
Quarter: 2012Q3

REPORT INFORMATION
  Report Type: 
  Country: None (occurrence: None)
  Receive Date: 20120810
  Receipt Date: 20120810
  Transmission Date: 20120928
  Serious: Yes (Life-Threatening)
  Sender: FDA-Public Use
  Company Number: None

PATIENT
  Sex: Male

DRUGS (1)
  1. ERBITUX [Suspect]
     Indication: THROAT CANCER
     Dosage: UNKNOWN IV
     Route: 042

REACTIONS (8)
  - DIZZINESS [None]
  - CHEST PAIN [None]
  - CHILLS [None]
  - FEELING HOT [None]
  - ERYTHEMA [None]
  - NAUSEA [None]
  - CHEST DISCOMFORT [None]
  - INFUSION RELATED REACTION [None]
